FAERS Safety Report 26147425 (Version 1)
Quarter: 2025Q4

REPORT INFORMATION
  Report Type: Spontaneous
  Country: US (occurrence: US)
  Receive Date: 20251211
  Receipt Date: 20251211
  Transmission Date: 20260117
  Serious: Yes (Hospitalization, Other)
  Sender: ELI LILLY AND COMPANY
  Company Number: US-ELI_LILLY_AND_COMPANY-US202512012961

PATIENT
  Age: 63 Year
  Sex: Male

DRUGS (7)
  1. ZEPBOUND [Suspect]
     Active Substance: TIRZEPATIDE
     Indication: Lactose intolerance
     Dosage: 5 MG, WEEKLY (1/W)
     Route: 065
     Dates: start: 202411, end: 202504
  2. ZEPBOUND [Suspect]
     Active Substance: TIRZEPATIDE
     Indication: Lactose intolerance
     Dosage: 5 MG, WEEKLY (1/W)
     Route: 065
     Dates: start: 202411, end: 202504
  3. ZEPBOUND [Suspect]
     Active Substance: TIRZEPATIDE
     Indication: Syncope
  4. ZEPBOUND [Suspect]
     Active Substance: TIRZEPATIDE
     Indication: Syncope
  5. ESCITALOPRAM [Concomitant]
     Active Substance: ESCITALOPRAM OXALATE
     Indication: Stress
     Dosage: UNK
     Dates: start: 2018
  6. EZETIMIBE [Concomitant]
     Active Substance: EZETIMIBE
     Indication: Blood cholesterol
     Dosage: UNK
     Dates: start: 2015
  7. MELOXICAM [Concomitant]
     Active Substance: MELOXICAM
     Indication: Arthralgia
     Dosage: UNK
     Dates: start: 2023

REACTIONS (5)
  - Syncope [Recovered/Resolved with Sequelae]
  - Cardiac failure [Unknown]
  - Irritable bowel syndrome [Recovered/Resolved with Sequelae]
  - Lactose intolerance [Unknown]
  - Off label use [Unknown]

NARRATIVE: CASE EVENT DATE: 20241201
